FAERS Safety Report 9530676 (Version 11)
Quarter: 2014Q1

REPORT INFORMATION
  Report Type: Report from Study
  Country: JP (occurrence: JP)
  Receive Date: 20130918
  Receipt Date: 20140212
  Transmission Date: 20141002
  Serious: Yes (Death, Hospitalization, Other)
  Sender: FDA-Public Use
  Company Number: JP-PFIZER INC-2013265479

PATIENT
  Age: 66 Year
  Sex: Female
  Weight: 48 kg

DRUGS (12)
  1. LIPITOR [Suspect]
     Indication: HYPERLIPIDAEMIA
     Dosage: 10 MG, 1X/DAY
     Route: 048
     Dates: end: 20131122
  2. ASP015K [Suspect]
     Indication: RHEUMATOID ARTHRITIS
     Dosage: 150 MG, DAILY
     Route: 048
     Dates: start: 20120511, end: 20120802
  3. ASP015K [Suspect]
     Dosage: 50 MG, 1X/DAY
     Route: 048
     Dates: start: 20120831, end: 20130606
  4. BENET [Concomitant]
     Indication: OSTEOPOROSIS
     Dosage: 2.5 MG, 1X/DAY
     Route: 048
     Dates: end: 20131209
  5. AMLODIPINE BESILATE [Concomitant]
     Indication: HYPERTENSION
     Dosage: 5 MG, 1X/DAY
     Route: 048
     Dates: end: 20131003
  6. MEDROL [Concomitant]
     Indication: RHEUMATOID ARTHRITIS
     Dosage: 1 MG, DAILY
     Route: 048
     Dates: end: 20131209
  7. RELIFEN [Concomitant]
     Indication: RHEUMATOID ARTHRITIS
     Dosage: 800 MG, DAILY
     Route: 048
     Dates: end: 20131209
  8. REBAMIPIDE [Concomitant]
     Indication: GASTRITIS PROPHYLAXIS
     Dosage: 200 MG, DAILY
     Route: 048
     Dates: start: 20130608, end: 20131209
  9. CRAVIT [Concomitant]
     Indication: ENDOMETRITIS
     Dosage: UNK
     Dates: start: 20130614, end: 20130813
  10. TAKEPRON [Concomitant]
     Dosage: UNK
     Dates: start: 20130608, end: 20130706
  11. ROCEPHINE [Concomitant]
     Dosage: UNK
     Dates: start: 20130614, end: 20130620
  12. GENINAX [Concomitant]
     Dosage: UNK
     Dates: start: 20130621, end: 20130628

REACTIONS (1)
  - Sarcoma uterus [Fatal]
